APPROVED DRUG PRODUCT: ERYTHROCIN
Active Ingredient: ERYTHROMYCIN LACTOBIONATE
Strength: EQ 500MG BASE/VIAL
Dosage Form/Route: INJECTABLE;INJECTION
Application: A062586 | Product #001
Applicant: ABBOTT LABORATORIES PHARMACEUTICAL PRODUCTS DIV
Approved: Jan 4, 1988 | RLD: No | RS: No | Type: DISCN